FAERS Safety Report 9293983 (Version 1)
Quarter: 2013Q1

REPORT INFORMATION
  Report Type: Spontaneous
  Country: US (occurrence: None)
  Receive Date: 20121214
  Receipt Date: 20121214
  Transmission Date: 20140127
  Serious: No
  Sender: FDA-Public Use
  Company Number: 1208USA0019043

PATIENT
  Sex: 0

DRUGS (2)
  1. JANUVIA (SITAGLIPTIN PHOSPHATE) FILM-COATED TABLET, 100MG [Suspect]
     Indication: TYPE 2 DIABETES MELLITUS
     Route: 048
  2. METFORMIN (METFORMIN) [Concomitant]

REACTIONS (2)
  - Renal failure [None]
  - Overdose [None]
